FAERS Safety Report 6175015-6 (Version None)
Quarter: 2009Q2

REPORT INFORMATION
  Report Type: 
  Country: None (occurrence: None)
  Receive Date: 20090430
  Receipt Date: 20090423
  Transmission Date: 20091009
  Serious: Yes (Other)
  Sender: FDA-Public Use
  Company Number: PHHY2009BR15424

PATIENT
  Age: 55 Year
  Sex: Female

DRUGS (2)
  1. EXFORGE [Suspect]
     Indication: HYPERTENSION
     Dosage: 1 DF, QD
     Route: 048
     Dates: start: 20090416, end: 20090424
  2. SIMVASTATIN [Concomitant]
     Indication: BLOOD CHOLESTEROL
     Dosage: 1 TABLET AT NIGHT
     Route: 048
     Dates: start: 20090426

REACTIONS (16)
  - ABDOMINAL PAIN [None]
  - BACK PAIN [None]
  - COUGH [None]
  - CRYING [None]
  - DECREASED ACTIVITY [None]
  - DYSGEUSIA [None]
  - EYE PAIN [None]
  - HEADACHE [None]
  - INFLUENZA LIKE ILLNESS [None]
  - IRRITABILITY [None]
  - NASAL CONGESTION [None]
  - NAUSEA [None]
  - SNEEZING [None]
  - THROAT IRRITATION [None]
  - VISION BLURRED [None]
  - WHEEZING [None]
